FAERS Safety Report 22290021 (Version 1)
Quarter: 2023Q2

REPORT INFORMATION
  Report Type: Report from Study
  Country: US (occurrence: US)
  Receive Date: 20230505
  Receipt Date: 20230505
  Transmission Date: 20230722
  Serious: Yes (Other)
  Sender: FDA-Public Use
  Company Number: US-ABBVIE-4722119

PATIENT
  Sex: Male

DRUGS (1)
  1. VENCLEXTA [Suspect]
     Active Substance: VENETOCLAX
     Indication: Chronic lymphocytic leukaemia
     Dosage: FOUR TABLETS BY MOUTH ONCE DAILY?STRENGTH: 100 MG
     Route: 048

REACTIONS (4)
  - Condition aggravated [Unknown]
  - Penile pain [Not Recovered/Not Resolved]
  - Adhesion [Unknown]
  - Unevaluable event [Unknown]
